FAERS Safety Report 4709581-1 (Version None)
Quarter: 2005Q3

REPORT INFORMATION
  Report Type: 
  Country: None (occurrence: None)
  Receive Date: 20050706
  Receipt Date: 20050622
  Transmission Date: 20060218
  Serious: No
  Sender: FDA-Public Use
  Company Number: 05H-066-0300517-00

PATIENT

DRUGS (4)
  1. HEPARIN SODIUM [Suspect]
     Indication: ANTICOAGULANT THERAPY
     Dosage: 10-20 IU/KG
  2. HEPARIN SODIUM [Suspect]
     Indication: ANTICOAGULANT THERAPY
     Dosage: 60 IU/KG, ONCE, INTRAVENOUS BOLUS
     Route: 040
  3. PLATELET GLYCOPROTEIN IIB/IIIA INHIBITOR (PLATELET AGGREGATION INHIBIT [Concomitant]
  4. ASPIRIN [Concomitant]

REACTIONS (2)
  - PROCEDURAL COMPLICATION [None]
  - SYNCOPE VASOVAGAL [None]
